FAERS Safety Report 5621755-4 (Version None)
Quarter: 2008Q1

REPORT INFORMATION
  Report Type: 
  Country: None (occurrence: None)
  Receive Date: 20080211
  Receipt Date: 20080128
  Transmission Date: 20080703
  Serious: Yes (Other)
  Sender: FDA-Public Use
  Company Number: PHEH2008US01275

PATIENT
  Sex: Female

DRUGS (1)
  1. METHYLPHENIDATE HCL [Suspect]
     Dates: start: 20050101

REACTIONS (4)
  - HEADACHE [None]
  - LOWER LIMB FRACTURE [None]
  - SINUS CONGESTION [None]
  - WEIGHT INCREASED [None]
